FAERS Safety Report 15540916 (Version 2)
Quarter: 2018Q4

REPORT INFORMATION
  Report Type: Other
  Country: IT (occurrence: IT)
  Receive Date: 20181023
  Receipt Date: 20181024
  Transmission Date: 20190205
  Serious: Yes (Hospitalization, Other)
  Sender: FDA-Public Use
  Company Number: IT-LUPIN PHARMACEUTICALS INC.-2018-07475

PATIENT
  Age: 25 Year
  Sex: Female

DRUGS (3)
  1. GLICLAZIDE [Suspect]
     Active Substance: GLICLAZIDE
     Indication: SUICIDE ATTEMPT
     Dosage: 30 DF, UNK
     Route: 048
  2. MICROGYNON                         /00022701/ [Suspect]
     Active Substance: ETHINYL ESTRADIOL\LEVONORGESTREL ACETATE
     Indication: SUICIDE ATTEMPT
     Dosage: UNK
     Route: 048
  3. CETIRIZINE [Suspect]
     Active Substance: CETIRIZINE HYDROCHLORIDE
     Indication: SUICIDE ATTEMPT
     Dosage: 10 DF, UNK
     Route: 048

REACTIONS (6)
  - Hypoglycaemia [Recovered/Resolved]
  - Bradycardia [Recovered/Resolved]
  - Abdominal pain [Recovered/Resolved]
  - Intentional overdose [Unknown]
  - Respiratory alkalosis [Recovered/Resolved]
  - Suicide attempt [Unknown]

NARRATIVE: CASE EVENT DATE: 20180604
